FAERS Safety Report 5613889-5 (Version None)
Quarter: 2008Q1

REPORT INFORMATION
  Report Type: 
  Country: None (occurrence: None)
  Receive Date: 20080205
  Receipt Date: 20080123
  Transmission Date: 20080703
  Serious: Yes (Other)
  Sender: FDA-Public Use
  Company Number: DE-ELI_LILLY_AND_COMPANY-DE200711000691

PATIENT
  Sex: Female
  Weight: 60 kg

DRUGS (3)
  1. CYMBALTA [Suspect]
     Indication: MAJOR DEPRESSION
     Dosage: 30 MG, DAILY (1/D)
     Route: 048
     Dates: start: 20071024, end: 20071030
  2. CYMBALTA [Suspect]
     Dosage: 60 MG, DAILY (1/D)
     Route: 048
     Dates: start: 20071031
  3. CITALOPRAM HYDROBROMIDE [Concomitant]
     Indication: MAJOR DEPRESSION
     Dosage: UNK, UNK
     Route: 048
     Dates: end: 20071023

REACTIONS (5)
  - BLOOD PRESSURE DECREASED [None]
  - CIRCULATORY COLLAPSE [None]
  - HYPERHIDROSIS [None]
  - PALLOR [None]
  - VENTRICULAR EXTRASYSTOLES [None]
